FAERS Safety Report 18574893 (Version 1)
Quarter: 2020Q4

REPORT INFORMATION
  Report Type: Spontaneous
  Country: IT (occurrence: IT)
  Receive Date: 20201203
  Receipt Date: 20201203
  Transmission Date: 20210114
  Serious: Yes (Life-Threatening, Hospitalization, Other)
  Sender: FDA-Public Use
  Company Number: IT-AMGEN-ITASP2020192712

PATIENT
  Age: 50 Year
  Sex: Female

DRUGS (15)
  1. TAMOXIFEN [TAMOXIFEN CITRATE] [Concomitant]
     Active Substance: TAMOXIFEN CITRATE
     Dosage: 20 MILLIGRAM, QD
  2. FILGRASTIM [Suspect]
     Active Substance: FILGRASTIM
     Indication: NEUTROPENIA
     Dosage: 30MU/0,5ML/DAY
     Route: 065
  3. PACLITAXEL. [Concomitant]
     Active Substance: PACLITAXEL
     Dosage: 175 MILLIGRAM/SQ. METER, 3H
     Route: 042
  4. CALCIUM LEVOFOLINATE PENTAHYDRATE [Concomitant]
     Active Substance: LEVOLEUCOVORIN CALCIUM
     Dosage: 100 MILLIGRAM/SQ. METER, AS A 3-MIN IV INFUSION ON DAYS 1-3
     Route: 042
  5. CAPECITABINE. [Concomitant]
     Active Substance: CAPECITABINE
     Dosage: 2500 MILLIGRAM/SQ. METER, Q3WK
     Dates: start: 201710
  6. 5-FU [FLUOROURACIL] [Concomitant]
     Active Substance: FLUOROURACIL
     Dosage: 350 MILLIGRAM/SQ. METER, 3 MIN ON DAYS 1 AND 3
     Route: 042
  7. CEFTRIAXON [Concomitant]
     Active Substance: CEFTRIAXONE
     Dosage: 2 GRAM, QD
  8. FLUCONAZOLE. [Concomitant]
     Active Substance: FLUCONAZOLE
     Dosage: 100 MILLIGRAM, QD
  9. VINORELBINE [Concomitant]
     Active Substance: VINORELBINE TARTRATE
     Dosage: 25 MILLIGRAM/SQ. METER, 6-MIN IV INFUSION ON DAYS I AND 3
     Route: 042
  10. XGEVA [Suspect]
     Active Substance: DENOSUMAB
     Indication: METASTASES TO BONE
     Dosage: 120 MILLIGRAM, 28 DAYS
     Route: 042
  11. FILGRASTIM [Suspect]
     Active Substance: FILGRASTIM
     Dosage: TWO VIALS/DAY (60 MU/ DAY
     Route: 065
  12. EPIRUBICIN [Concomitant]
     Active Substance: EPIRUBICIN
     Dosage: 150 MILLIGRAM/SQ. METER, 2H
     Route: 042
  13. DEXRAZOXANE [DEXRAZOXANE HYDROCHLORIDE] [Concomitant]
     Dosage: 1000 MILLIGRAM/SQ. METER, 1H
  14. PACLITAXEL. [Concomitant]
     Active Substance: PACLITAXEL
     Dosage: 400 MILLIGRAM/SQ. METER, 24H
     Route: 042
  15. LETROZOLE AN [Concomitant]
     Dosage: 2.5 MILLIGRAM, QD

REACTIONS (8)
  - Pyrexia [Recovered/Resolved]
  - Condition aggravated [Recovering/Resolving]
  - Therapy partial responder [Unknown]
  - Neutropenia [Recovered/Resolved]
  - Blood calcium increased [Recovering/Resolving]
  - Neutrophil count decreased [Recovering/Resolving]
  - Haemoglobin decreased [Recovering/Resolving]
  - Blood pressure increased [Recovered/Resolved]
